FAERS Safety Report 22267065 (Version 1)
Quarter: 2023Q2

REPORT INFORMATION
  Report Type: Spontaneous
  Country: US (occurrence: None)
  Receive Date: 20230428
  Receipt Date: 20230428
  Transmission Date: 20230721
  Serious: Yes (Hospitalization)
  Sender: FDA-Public Use
  Company Number: None

PATIENT
  Age: 73 Year
  Sex: Male
  Weight: 148.82 kg

DRUGS (12)
  1. ABIRATERONE [Suspect]
     Active Substance: ABIRATERONE
     Indication: Prostate cancer
     Dosage: FREQUENCY : DAILY;?
     Route: 048
     Dates: start: 20230314
  2. ALLOPURINOL [Concomitant]
  3. AMLODIPINE [Concomitant]
  4. CARVEDILOL [Concomitant]
     Active Substance: CARVEDILOL
  5. CASODEX [Concomitant]
     Active Substance: BICALUTAMIDE
  6. CLOPIDOGREL [Concomitant]
  7. FERROUS SULFATE [Concomitant]
  8. GABAPENTIN [Concomitant]
  9. LEVOTHYROXINE [Concomitant]
     Active Substance: LEVOTHYROXINE
  10. LOVASTATIN [Concomitant]
  11. PREDNISONE [Concomitant]
  12. TRAZODONE [Concomitant]

REACTIONS (1)
  - Blood glucose increased [None]
